FAERS Safety Report 5107589-8 (Version None)
Quarter: 2006Q3

REPORT INFORMATION
  Report Type: 
  Country: None (occurrence: None)
  Receive Date: 20060731
  Receipt Date: 20060410
  Transmission Date: 20061208
  Serious: No
  Sender: FDA-Public Use
  Company Number: 2006PV011706

PATIENT
  Age: 76 Year
  Sex: Female
  Weight: 73.9363 kg

DRUGS (5)
  1. BYETTA [Suspect]
     Indication: DIABETES MELLITUS NON-INSULIN-DEPENDENT
     Dosage: 5 MCG BID SC
     Route: 058
     Dates: start: 20060201
  2. ACTOS [Concomitant]
  3. METFORMIN HCL [Concomitant]
  4. RHESTASIS [Concomitant]
  5. SOOTHE [Concomitant]

REACTIONS (6)
  - BLOOD GLUCOSE INCREASED [None]
  - DECREASED APPETITE [None]
  - MACULOPATHY [None]
  - PHOTOPSIA [None]
  - VITREOUS FLOATERS [None]
  - WEIGHT DECREASED [None]
